FAERS Safety Report 15561113 (Version 1)
Quarter: 2018Q4

REPORT INFORMATION
  Report Type: Spontaneous
  Country: US (occurrence: US)
  Receive Date: 20181029
  Receipt Date: 20181029
  Transmission Date: 20190205
  Serious: No
  Sender: FDA-Public Use
  Company Number: US-PFIZER INC-2018438251

PATIENT
  Age: 48 Year

DRUGS (1)
  1. LYRICA [Suspect]
     Active Substance: PREGABALIN
     Dosage: 150 MG, 2X/DAY (QTY:60 SIXTY)
     Route: 048

REACTIONS (2)
  - Somnolence [Unknown]
  - Dry mouth [Unknown]
